FAERS Safety Report 6893114-8 (Version None)
Quarter: 2010Q3

REPORT INFORMATION
  Report Type: 
  Country: None (occurrence: None)
  Receive Date: 20100731
  Receipt Date: 20090512
  Transmission Date: 20110219
  Serious: No
  Sender: FDA-Public Use
  Company Number: US-PFIZER INC-2006000982

PATIENT
  Sex: Male

DRUGS (6)
  1. NEURONTIN [Suspect]
     Route: 065
  2. LIPITOR [Suspect]
     Route: 065
  3. LYRICA [Suspect]
     Route: 065
     Dates: start: 20051221
  4. GLUCOPHAGE [Concomitant]
     Route: 065
  5. ACCUPRIL [Concomitant]
     Route: 065
  6. KLONOPIN [Concomitant]
     Route: 065

REACTIONS (8)
  - BLOOD CHOLESTEROL INCREASED [None]
  - BURNING SENSATION [None]
  - DECREASED APPETITE [None]
  - HEPATIC ENZYME INCREASED [None]
  - INSOMNIA [None]
  - NEUROPATHY PERIPHERAL [None]
  - SOMNOLENCE [None]
  - WEIGHT DECREASED [None]
